FAERS Safety Report 4963872-8 (Version None)
Quarter: 2006Q1

REPORT INFORMATION
  Report Type: 
  Country: None (occurrence: None)
  Receive Date: 20060201
  Receipt Date: 20051118
  Transmission Date: 20060701
  Serious: No
  Sender: FDA-Public Use
  Company Number: 2005PV004602

PATIENT
  Age: 67 Year
  Sex: Female
  Weight: 69.4003 kg

DRUGS (5)
  1. BYETTA [Suspect]
     Indication: DIABETES MELLITUS NON-INSULIN-DEPENDENT
     Dosage: 5 MCG;BID;SC
     Route: 058
     Dates: start: 20051105
  2. GLUCOPHAGE [Concomitant]
  3. ACTOS [Concomitant]
  4. AMARYL [Concomitant]
  5. LEXAPRO [Concomitant]

REACTIONS (3)
  - DECREASED APPETITE [None]
  - NAUSEA [None]
  - VISION BLURRED [None]
